FAERS Safety Report 10210458 (Version 1)
Quarter: 2014Q2

REPORT INFORMATION
  Report Type: Spontaneous
  Country: FR (occurrence: None)
  Receive Date: 20140528
  Receipt Date: 20140528
  Transmission Date: 20141212
  Serious: Yes (Hospitalization)
  Sender: FDA-Public Use
  Company Number: IPC201405-000244

PATIENT
  Age: 7 Year
  Sex: 0

DRUGS (1)
  1. TRAMADOL (TRAMADOL) (TRAMADOL) [Suspect]

REACTIONS (9)
  - Cardiogenic shock [None]
  - Convulsion [None]
  - Acute pulmonary oedema [None]
  - Toxicity to various agents [None]
  - Hepatomegaly [None]
  - Mitral valve incompetence [None]
  - Medication residue present [None]
  - Blood lactic acid increased [None]
  - Drug level increased [None]
